FAERS Safety Report 4440269-0 (Version None)
Quarter: 2004Q3

REPORT INFORMATION
  Report Type: 
  Country: None (occurrence: None)
  Receive Date: 20040903
  Receipt Date: 20040512
  Transmission Date: 20050211
  Serious: No
  Sender: FDA-Public Use
  Company Number: US-GLAXOSMITHKLINE-A0510862A

PATIENT
  Age: 72 Year
  Sex: Male

DRUGS (2)
  1. REQUIP [Suspect]
     Indication: PARKINSON'S DISEASE
     Dosage: 1MG THREE TIMES PER DAY
  2. UNSPECIFIED MEDICATION [Suspect]
     Indication: PARKINSON'S DISEASE

REACTIONS (3)
  - DRY MOUTH [None]
  - FACE OEDEMA [None]
  - ORAL MUCOSAL BLISTERING [None]
